FAERS Safety Report 9436872 (Version 2)
Quarter: 2013Q3

REPORT INFORMATION
  Report Type: Spontaneous
  Country: US (occurrence: US)
  Receive Date: 20130802
  Receipt Date: 20130830
  Transmission Date: 20140515
  Serious: No
  Sender: FDA-Public Use
  Company Number: US-PFIZER INC-2013222510

PATIENT
  Age: 32 Year
  Sex: Female
  Weight: 55.33 kg

DRUGS (7)
  1. XELJANZ [Suspect]
     Indication: RHEUMATOID ARTHRITIS
     Dosage: 5 MG (1 TABLET) TWICE DAILY
     Route: 048
     Dates: start: 20130621, end: 20130624
  2. PROTONIX [Concomitant]
     Dosage: 20 MG
  3. CELEBREX [Concomitant]
     Dosage: 100 MG
  4. WELLBUTRIN [Concomitant]
     Dosage: 100 MG
  5. AMITRIPTYLINE [Concomitant]
     Dosage: 50 MG
  6. TYLENOL [Concomitant]
     Dosage: 325 MG
  7. PROBIOTICS [Concomitant]
     Dosage: UNK

REACTIONS (2)
  - Feeling jittery [Recovered/Resolved]
  - Nervousness [Recovered/Resolved]
